FAERS Safety Report 18362664 (Version 8)
Quarter: 2021Q3

REPORT INFORMATION
  Report Type: Spontaneous
  Country: US (occurrence: US)
  Receive Date: 20201008
  Receipt Date: 20210907
  Transmission Date: 20211014
  Serious: Yes (Other)
  Sender: FDA-Public Use
  Company Number: US-PFIZER INC-2020387807

PATIENT
  Age: 45 Year
  Sex: Female
  Weight: 114.29 kg

DRUGS (16)
  1. VITAMIN C [Concomitant]
     Active Substance: ASCORBIC ACID
     Dosage: UNK UNK, DAILY
     Dates: start: 20110510
  2. B COMPLEX [AMINOBENZOIC ACID;BIOTIN;CALCIUM PANTOTHENATE;CHOLINE BITAR [Concomitant]
     Dosage: UNK
     Dates: start: 20160919
  3. LETROZOLE. [Concomitant]
     Active Substance: LETROZOLE
     Indication: BREAST CANCER
     Dosage: 2.5 MG, 1X/DAY TAKE 1 TABLET EVERY DAY ORAL ROUTE
     Route: 048
     Dates: start: 20200825
  4. IBRANCE [Suspect]
     Active Substance: PALBOCICLIB
     Dosage: 125 MG, CYCLIC (DAILY FOR 21 DAYS, THEN 7 DAYS OFF, TAKEN WITH FOOD)
     Route: 048
     Dates: start: 20210312
  5. VITAMIN D3 [Concomitant]
     Active Substance: CHOLECALCIFEROL
     Dosage: 5000 IU, DAILY
     Dates: start: 20180202
  6. LUPRON DEPOT [Concomitant]
     Active Substance: LEUPROLIDE ACETATE
     Dosage: UNK, MONTHLY
  7. PYRIDIUM [Concomitant]
     Active Substance: PHENAZOPYRIDINE
     Indication: BLADDER SPASM
     Dosage: TAKE 1 TABLET BY ORAL ROUTE TIMES EVERY DAY AFTER MEALS. AS NEEDED
     Route: 048
     Dates: start: 20200408
  8. EPA DHA 720 [Concomitant]
     Active Substance: DOCONEXENT\ICOSAPENT
     Dosage: 2 DF, DAILY
     Dates: start: 20170131
  9. VITAMIN E [Concomitant]
     Active Substance: .ALPHA.-TOCOPHEROL
     Dosage: 400 IU, DAILY
     Dates: start: 20180202
  10. PARAGARD T 380A [Concomitant]
     Active Substance: COPPER
     Dosage: UNK
     Dates: start: 20181005
  11. COVID?19 VACCINE [Concomitant]
     Indication: COVID-19 IMMUNISATION
     Dosage: UNK
     Dates: start: 20210305, end: 20210305
  12. IBRANCE [Suspect]
     Active Substance: PALBOCICLIB
     Indication: BREAST CANCER FEMALE
     Dosage: 125 MG, CYCLIC (DAILY FOR 21 DAYS, THEN 7 DAYS OFF, TAKEN WITH FOOD)
     Route: 048
     Dates: start: 20190917
  13. IBRANCE [Suspect]
     Active Substance: PALBOCICLIB
     Dosage: 125 MG
     Dates: start: 20200803
  14. IBRANCE [Suspect]
     Active Substance: PALBOCICLIB
     Dosage: 125 MG, DAILY
     Route: 048
     Dates: start: 20201125
  15. XGEVA [Concomitant]
     Active Substance: DENOSUMAB
     Dosage: LAST RECEIVED 09MAR2021, MONTHLY
  16. PROBIOTIC [BIFIDOBACTERIUM LACTIS] [Concomitant]
     Active Substance: BIFIDOBACTERIUM ANIMALIS LACTIS
     Dosage: 90 BILLION CELL CAP DAILY
     Dates: start: 20170131

REACTIONS (10)
  - White blood cell count decreased [Unknown]
  - Neutropenia [Unknown]
  - Red blood cell count decreased [Unknown]
  - Thrombocytopenia [Unknown]
  - Product dose omission issue [Unknown]
  - Alopecia [Not Recovered/Not Resolved]
  - Nausea [Unknown]
  - Hot flush [Unknown]
  - Dry skin [Unknown]
  - Gastrooesophageal reflux disease [Recovering/Resolving]

NARRATIVE: CASE EVENT DATE: 202009
